FAERS Safety Report 9093659 (Version 1)
Quarter: 2013Q1

REPORT INFORMATION
  Report Type: Report from Study
  Country: US (occurrence: US)
  Receive Date: 20130131
  Receipt Date: 20130131
  Transmission Date: 20140127
  Serious: No
  Sender: FDA-Public Use
  Company Number: US-ABBOTT-12P-163-1002440-00

PATIENT
  Age: 57 Year
  Sex: Female

DRUGS (5)
  1. HUMIRA [Suspect]
     Indication: CROHN^S DISEASE
     Dates: start: 20120911
  2. SERTRALINE [Concomitant]
     Indication: PREMENSTRUAL SYNDROME
     Dosage: 50MG DAILY
  3. TRIAMTERENE [Concomitant]
     Indication: PRODUCT USED FOR UNKNOWN INDICATION
     Dosage: 37.5MG DAILY
  4. DILTIAZEM [Concomitant]
     Indication: HYPERTENSION
     Dosage: 240MG DAILY
  5. TOPROL [Concomitant]
     Indication: HYPERTENSION
     Dosage: 25MG DAILY

REACTIONS (1)
  - Injection site pain [Not Recovered/Not Resolved]
